FAERS Safety Report 7637976-5 (Version None)
Quarter: 2011Q3

REPORT INFORMATION
  Report Type: 
  Country: None (occurrence: None)
  Receive Date: 20110720
  Receipt Date: 20110711
  Transmission Date: 20111222
  Serious: Yes (Death, Hospitalization, Other)
  Sender: FDA-Public Use
  Company Number: 2009AC000485

PATIENT
  Age: 59 Year
  Sex: Male

DRUGS (13)
  1. SOLU-MEDROL [Concomitant]
  2. INSULIN [Concomitant]
  3. ALTACE [Concomitant]
  4. BUMEX [Concomitant]
  5. ROCEPHIN [Concomitant]
  6. COUMADIN [Concomitant]
  7. COREG [Concomitant]
  8. DIGOXIN [Suspect]
     Indication: CARDIAC FAILURE CONGESTIVE
     Dosage: 0.125 MG;QD;PO
     Route: 048
     Dates: start: 20040108, end: 20041031
  9. DIGOXIN [Suspect]
     Indication: CARDIAC FAILURE CONGESTIVE
     Dosage: 0.125 MG;QD;PO
     Route: 048
     Dates: start: 20051102, end: 20070820
  10. AVANDIA [Concomitant]
  11. VANCOMYCIN [Concomitant]
  12. FUROSEMIDE [Concomitant]
  13. METOLAZONE [Concomitant]

REACTIONS (26)
  - RENAL FAILURE [None]
  - LEFT VENTRICULAR DYSFUNCTION [None]
  - CONDITION AGGRAVATED [None]
  - CELLULITIS [None]
  - CARDIAC FAILURE CONGESTIVE [None]
  - AORTIC VALVE INCOMPETENCE [None]
  - HEPATOCELLULAR INJURY [None]
  - INTERNATIONAL NORMALISED RATIO INCREASED [None]
  - ATRIAL FLUTTER [None]
  - CONGESTIVE CARDIOMYOPATHY [None]
  - BUNDLE BRANCH BLOCK LEFT [None]
  - DIABETIC RETINOPATHY [None]
  - TRICUSPID VALVE INCOMPETENCE [None]
  - DIABETES MELLITUS INADEQUATE CONTROL [None]
  - DYSPNOEA [None]
  - OEDEMA PERIPHERAL [None]
  - TROPONIN INCREASED [None]
  - PROTEINURIA [None]
  - PNEUMONIA [None]
  - ASCITES [None]
  - WEIGHT INCREASED [None]
  - TREATMENT NONCOMPLIANCE [None]
  - INJURY [None]
  - ECONOMIC PROBLEM [None]
  - MITRAL VALVE INCOMPETENCE [None]
  - GALLBLADDER DISORDER [None]
